FAERS Safety Report 6689642-0 (Version None)
Quarter: 2010Q2

REPORT INFORMATION
  Report Type: 
  Country: None (occurrence: None)
  Receive Date: 20100421
  Receipt Date: 20100414
  Transmission Date: 20101027
  Serious: Yes (Hospitalization)
  Sender: FDA-Public Use
  Company Number: US-BIOGENIDEC-2010BI012388

PATIENT
  Age: 55 Year
  Sex: Female
  Weight: 81 kg

DRUGS (2)
  1. AVONEX [Suspect]
     Indication: MULTIPLE SCLEROSIS
     Route: 030
     Dates: start: 20100315
  2. MEDICATION (NOS) [Concomitant]
     Indication: ANTIBIOTIC PROPHYLAXIS
     Route: 048

REACTIONS (4)
  - CHEST DISCOMFORT [None]
  - HEADACHE [None]
  - HYPOPHAGIA [None]
  - NAUSEA [None]
